FAERS Safety Report 6655163-4 (Version None)
Quarter: 2010Q1

REPORT INFORMATION
  Report Type: 
  Country: None (occurrence: None)
  Receive Date: 20100329
  Receipt Date: 20100315
  Transmission Date: 20100710
  Serious: No
  Sender: FDA-Public Use
  Company Number: US-B.I. PHARMACEUTICALS,INC./RIDGEFIELD-2010-BP-03039BP

PATIENT
  Sex: Male

DRUGS (8)
  1. SPIRIVA [Suspect]
     Indication: ASTHMA
     Dosage: 18 MCG
     Route: 055
     Dates: start: 20070101, end: 20090701
  2. OXYCODONE HCL [Concomitant]
     Indication: BACK PAIN
  3. OXYCODONE HCL [Concomitant]
     Indication: PAIN IN EXTREMITY
  4. PERCOCET [Concomitant]
     Indication: BACK PAIN
  5. PERCOCET [Concomitant]
     Indication: PAIN IN EXTREMITY
  6. SINGULAIR [Concomitant]
     Indication: HYPERSENSITIVITY
  7. ULTRAM [Concomitant]
     Indication: BACK PAIN
  8. ULTRAM [Concomitant]
     Indication: PAIN IN EXTREMITY

REACTIONS (2)
  - POLLAKIURIA [None]
  - URINARY RETENTION [None]
